FAERS Safety Report 5914841-2 (Version None)
Quarter: 2008Q4

REPORT INFORMATION
  Report Type: 
  Country: None (occurrence: None)
  Receive Date: 20081010
  Receipt Date: 20081001
  Transmission Date: 20090506
  Serious: Yes (Other)
  Sender: FDA-Public Use
  Company Number: PHHY2008GB05920

PATIENT
  Sex: Male

DRUGS (9)
  1. RASILEZ [Suspect]
     Dosage: 300 MG, QD
     Dates: start: 20080401
  2. INSULIN [Concomitant]
     Route: 058
  3. METFORMIN HCL [Concomitant]
     Dosage: 2 G, UNK
     Route: 048
  4. AMLODIPINE [Concomitant]
  5. ROSUVASTATIN [Concomitant]
     Dosage: 5 MG UNK
     Route: 048
     Dates: start: 20080328
  6. IRBESARTAN [Concomitant]
     Dosage: 300 MG UNK
     Route: 048
  7. DICLOFENAC [Concomitant]
     Dosage: 50 MG, TID
  8. TAMSULOSIN HCL [Concomitant]
     Dosage: 400MG UNK
  9. GLUCOSAMINE [Concomitant]
     Dosage: 1500 MG/DAY
     Route: 048

REACTIONS (1)
  - HYPOGLYCAEMIA [None]
